FAERS Safety Report 21987008 (Version 2)
Quarter: 2023Q2

REPORT INFORMATION
  Report Type: Report from Study
  Country: US (occurrence: US)
  Receive Date: 20230213
  Receipt Date: 20230413
  Transmission Date: 20230721
  Serious: Yes (Other)
  Sender: FDA-Public Use
  Company Number: US-GILEAD-2023-0616585

PATIENT
  Sex: Female

DRUGS (1)
  1. SACITUZUMAB GOVITECAN-HZIY [Suspect]
     Active Substance: SACITUZUMAB GOVITECAN-HZIY
     Indication: Breast cancer female
     Dosage: 590 MG ON DAYS 1 AND 8
     Route: 042
     Dates: start: 20230125

REACTIONS (5)
  - Loss of consciousness [Unknown]
  - Brain neoplasm malignant [Unknown]
  - Memory impairment [Unknown]
  - Confusional state [Unknown]
  - Diarrhoea [Unknown]
